FAERS Safety Report 23242664 (Version 1)
Quarter: 2023Q4

REPORT INFORMATION
  Report Type: Spontaneous
  Country: GB (occurrence: GB)
  Receive Date: 20231129
  Receipt Date: 20231129
  Transmission Date: 20240110
  Serious: Yes (Congenital Anomaly, Other)
  Sender: FDA-Public Use
  Company Number: None

PATIENT

DRUGS (3)
  1. GLATIRAMER ACETATE [Suspect]
     Active Substance: GLATIRAMER ACETATE
     Indication: Multiple sclerosis relapse
     Dosage: 40 MILLIGRAM, 3XW
     Route: 065
     Dates: start: 20230515
  2. ASPIRIN [Concomitant]
     Active Substance: ASPIRIN
     Indication: Autoimmune disorder
     Dosage: UNK
     Route: 065
     Dates: start: 20230424
  3. FOLIC ACID [Concomitant]
     Active Substance: FOLIC ACID
     Indication: Vitamin supplementation
     Dosage: UNK
     Route: 065

REACTIONS (1)
  - Congenital megacolon [Not Recovered/Not Resolved]

NARRATIVE: CASE EVENT DATE: 20231001
